FAERS Safety Report 4533081-5 (Version None)
Quarter: 2004Q4

REPORT INFORMATION
  Report Type: 
  Country: None (occurrence: None)
  Receive Date: 20041209
  Receipt Date: 20040210
  Transmission Date: 20050328
  Serious: Yes (Other)
  Sender: FDA-Public Use
  Company Number: HQWYE932111FEB04

PATIENT
  Age: 17 Year
  Sex: Female
  Weight: 52.21 kg

DRUGS (1)
  1. LODINE XL [Suspect]
     Indication: ARTHRITIS
     Dosage: 500 MG 1X PER 1 DAY, ORAL
     Route: 048
     Dates: start: 20030401, end: 20040101

REACTIONS (1)
  - ALANINE AMINOTRANSFERASE INCREASED [None]
